FAERS Safety Report 4839904-4 (Version None)
Quarter: 2005Q4

REPORT INFORMATION
  Report Type: 
  Country: None (occurrence: None)
  Receive Date: 20051129
  Receipt Date: 20051118
  Transmission Date: 20060501
  Serious: Yes (Other)
  Sender: FDA-Public Use
  Company Number: CA-ROCHE-425460

PATIENT
  Age: 35 Year
  Sex: Female

DRUGS (9)
  1. CLONAZEPAM [Suspect]
     Indication: DRUG USE FOR UNKNOWN INDICATION
     Route: 065
  2. CLONAZEPAM [Suspect]
     Route: 065
  3. IBUPROFEN [Suspect]
     Indication: DRUG USE FOR UNKNOWN INDICATION
     Route: 065
  4. IBUPROFEN [Suspect]
     Route: 065
  5. PAROXETINE HCL [Suspect]
     Indication: DRUG USE FOR UNKNOWN INDICATION
     Route: 065
  6. PAROXETINE HCL [Suspect]
     Route: 065
  7. PROMETHAZINE [Suspect]
     Indication: DRUG USE FOR UNKNOWN INDICATION
     Route: 065
  8. PROMETHAZINE [Suspect]
     Route: 065
  9. ALCOHOL [Concomitant]

REACTIONS (4)
  - HEART RATE INCREASED [None]
  - OVERDOSE [None]
  - PUPIL FIXED [None]
  - SUICIDE ATTEMPT [None]
